FAERS Safety Report 23721392 (Version 2)
Quarter: 2024Q2

REPORT INFORMATION
  Report Type: Spontaneous
  Country: US (occurrence: None)
  Receive Date: 20240409
  Receipt Date: 20240529
  Transmission Date: 20240715
  Serious: No
  Sender: FDA-Public Use
  Company Number: 2024A072561

PATIENT
  Sex: Female

DRUGS (1)
  1. BUDESONIDE\FORMOTEROL FUMARATE DIHYDRATE [Suspect]
     Active Substance: BUDESONIDE\FORMOTEROL FUMARATE DIHYDRATE
     Dosage: UNK UNK UNKNOWN
     Route: 055

REACTIONS (5)
  - Eye infection [Unknown]
  - Sinusitis [Unknown]
  - Intentional product misuse [Unknown]
  - Product packaging quantity issue [Unknown]
  - Hypersensitivity [Unknown]
